FAERS Safety Report 7934115-8 (Version None)
Quarter: 2011Q4

REPORT INFORMATION
  Report Type: 
  Country: None (occurrence: None)
  Receive Date: 20111122
  Receipt Date: 20111117
  Transmission Date: 20120403
  Serious: Yes (Hospitalization, Other)
  Sender: FDA-Public Use
  Company Number: US-AMGEN-QUU431796

PATIENT
  Age: 74 Year
  Sex: Male
  Weight: 58.957 kg

DRUGS (3)
  1. NPLATE [Suspect]
     Indication: EVANS SYNDROME
  2. NPLATE [Suspect]
     Indication: IDIOPATHIC THROMBOCYTOPENIC PURPURA
     Dates: start: 20090101
  3. IMMUNE GLOBULIN NOS [Concomitant]
     Dosage: UNK
     Dates: start: 20000901

REACTIONS (8)
  - SEPSIS [None]
  - PLATELET COUNT INCREASED [None]
  - WALKING AID USER [None]
  - STAPHYLOCOCCAL INFECTION [None]
  - EPISTAXIS [None]
  - NERVOUSNESS [None]
  - B-CELL SMALL LYMPHOCYTIC LYMPHOMA [None]
  - CHRONIC LYMPHOCYTIC LEUKAEMIA [None]
